FAERS Safety Report 10785458 (Version 1)
Quarter: 2015Q1

REPORT INFORMATION
  Report Type: Spontaneous
  Country: FR (occurrence: None)
  Receive Date: 20150209
  Receipt Date: 20150209
  Transmission Date: 20150721
  Serious: Yes (Other)
  Sender: FDA-Public Use
  Company Number: FR-20150038

PATIENT
  Age: 33 Year
  Sex: Female

DRUGS (2)
  1. DOTAREM [Suspect]
     Active Substance: GADOTERATE MEGLUMINE
     Indication: ENDOMETRIOSIS
     Dosage: 15 ML (15 ML, 1 IN 1 D), INTRAVENOUS  (NOT OTHER SPECIFIED)?
     Route: 042
     Dates: start: 20150102, end: 20150102
  2. DOTAREM [Suspect]
     Active Substance: GADOTERATE MEGLUMINE
     Indication: NUCLEAR MAGNETIC RESONANCE IMAGING
     Dosage: 15 ML (15 ML, 1 IN 1 D), INTRAVENOUS  (NOT OTHER SPECIFIED)?
     Route: 042
     Dates: start: 20150102, end: 20150102

REACTIONS (3)
  - Ocular hyperaemia [None]
  - Eyelid oedema [None]
  - Erythema [None]

NARRATIVE: CASE EVENT DATE: 20150102
